FAERS Safety Report 10361860 (Version 1)
Quarter: 2014Q3

REPORT INFORMATION
  Report Type: Spontaneous
  Country: JP (occurrence: JP)
  Receive Date: 20140805
  Receipt Date: 20140805
  Transmission Date: 20150326
  Serious: Yes (Other)
  Sender: FDA-Public Use
  Company Number: PHHY2013JP159576

PATIENT
  Sex: Female

DRUGS (3)
  1. GLIVEC [Suspect]
     Active Substance: IMATINIB MESYLATE
     Dosage: 400 MG, DAILY
     Dates: start: 201301
  2. GLIVEC [Suspect]
     Active Substance: IMATINIB MESYLATE
     Indication: GASTROINTESTINAL STROMAL TUMOUR
     Dosage: 400 MG, DAILY
     Dates: start: 201207
  3. SUTENT [Suspect]
     Active Substance: SUNITINIB MALATE

REACTIONS (4)
  - Gastrointestinal stromal tumour [Unknown]
  - Hepatic neoplasm [Unknown]
  - Malignant neoplasm progression [Unknown]
  - Platelet count decreased [Unknown]
